FAERS Safety Report 7396808-3 (Version None)
Quarter: 2011Q1

REPORT INFORMATION
  Report Type: 
  Country: None (occurrence: None)
  Receive Date: 20110325
  Receipt Date: 20110317
  Transmission Date: 20110831
  Serious: Yes (Hospitalization)
  Sender: FDA-Public Use
  Company Number: 864452

PATIENT
  Sex: Female

DRUGS (5)
  1. CARBOPLATIN [Concomitant]
  2. PACLITAXEL [Suspect]
     Indication: OVARIAN EPITHELIAL CANCER
     Dosage: 135 , 60 MG/M2, INTRAPERITONEAL
     Route: 033
     Dates: start: 20070801, end: 20071201
  3. CAELYX [Concomitant]
  4. CISPLATIN [Suspect]
     Indication: OVARIAN EPITHELIAL CANCER
     Dosage: 75 MG/M^2, INTRAPERITONEAL
     Route: 033
     Dates: start: 20070801, end: 20071201
  5. GEMCITABINE HYDROCHLORIDE [Concomitant]

REACTIONS (9)
  - SMALL INTESTINAL OBSTRUCTION [None]
  - NEOPLASM MALIGNANT [None]
  - OVARIAN EPITHELIAL CANCER [None]
  - VOMITING [None]
  - PERITONEAL FIBROSIS [None]
  - EARLY SATIETY [None]
  - PERITONITIS [None]
  - METASTASES TO LIVER [None]
  - LYMPHADENOPATHY [None]
